FAERS Safety Report 8089276-X (Version None)
Quarter: 2012Q1

REPORT INFORMATION
  Report Type: 
  Country: None (occurrence: None)
  Receive Date: 20120128
  Receipt Date: 20110707
  Transmission Date: 20120608
  Serious: No
  Sender: FDA-Public Use
  Company Number: US-ABBOTT-11P-163-0837724-00

PATIENT
  Sex: Female
  Weight: 56.75 kg

DRUGS (7)
  1. DAYPRO [Concomitant]
     Indication: RHEUMATOID ARTHRITIS
  2. VITAMIN B-12 [Concomitant]
     Indication: VITAMIN SUPPLEMENTATION
  3. CALCIUM [Concomitant]
     Indication: MINERAL SUPPLEMENTATION
  4. FOLIC ACID [Concomitant]
     Indication: VITAMIN SUPPLEMENTATION
  5. PREDNISONE TAB [Concomitant]
     Indication: RHEUMATOID ARTHRITIS
  6. HUMIRA [Suspect]
     Indication: RHEUMATOID ARTHRITIS
     Route: 058
     Dates: start: 20080101, end: 20110705
  7. METHOTREXATE [Concomitant]
     Indication: RHEUMATOID ARTHRITIS
     Route: 048

REACTIONS (2)
  - PARAESTHESIA [None]
  - HYPOAESTHESIA [None]
